FAERS Safety Report 15377135 (Version 2)
Quarter: 2018Q3

REPORT INFORMATION
  Report Type: Report from Study
  Country: JP (occurrence: JP)
  Receive Date: 20180913
  Receipt Date: 20180929
  Transmission Date: 20181010
  Serious: No
  Sender: FDA-Public Use
  Company Number: JP-UCBSA-2018041179

PATIENT
  Age: 43 Year
  Sex: Female
  Weight: 67 kg

DRUGS (11)
  1. BLINDED LACOSAMIDE [Suspect]
     Active Substance: LACOSAMIDE
     Dosage: 150 MG, 2X/DAY (BID)
     Route: 048
     Dates: start: 20180822, end: 20180828
  2. BLINDED PLACEBO [Suspect]
     Active Substance: INVESTIGATIONAL PRODUCT
     Indication: EPILEPSY
     Dosage: 50 MG, 2X/DAY (BID)
     Route: 048
     Dates: start: 20180807, end: 20180813
  3. DEPAKENE [Concomitant]
     Active Substance: VALPROIC ACID
     Indication: EPILEPSY
     Dosage: 800 MG, 2X/DAY (BID)
     Route: 048
     Dates: start: 20170518
  4. FYCOMPA [Concomitant]
     Active Substance: PERAMPANEL
     Indication: EPILEPSY
     Dosage: 4 MG, ONCE DAILY (QD)
     Route: 048
     Dates: start: 20180427
  5. BLINDED LACOSAMIDE [Suspect]
     Active Substance: LACOSAMIDE
     Indication: EPILEPSY
     Dosage: 50 MG, 2X/DAY (BID)
     Route: 048
     Dates: start: 20180807, end: 20180813
  6. BLINDED LACOSAMIDE [Suspect]
     Active Substance: LACOSAMIDE
     Dosage: 100 MG, 2X/DAY (BID)
     Route: 048
     Dates: start: 20180814, end: 20180821
  7. BLINDED PLACEBO [Suspect]
     Active Substance: INVESTIGATIONAL PRODUCT
     Dosage: 150 MG, 2X/DAY (BID)
     Route: 048
     Dates: start: 20180822, end: 20180828
  8. BLINDED LACOSAMIDE [Suspect]
     Active Substance: LACOSAMIDE
     Dosage: 200 MG, 2X/DAY (BID)
     Route: 048
     Dates: start: 20180829
  9. BLINDED PLACEBO [Suspect]
     Active Substance: INVESTIGATIONAL PRODUCT
     Dosage: 200 MG, 2X/DAY (BID)
     Route: 048
     Dates: start: 20180829
  10. BLINDED PLACEBO [Suspect]
     Active Substance: INVESTIGATIONAL PRODUCT
     Dosage: 100 MG, 2X/DAY (BID)
     Route: 048
     Dates: start: 20180814, end: 20180821
  11. MYSTAN [Concomitant]
     Active Substance: CLOBAZAM
     Indication: EPILEPSY
     Dosage: 10 MG, ONCE DAILY (QD)
     Route: 048
     Dates: start: 20180601

REACTIONS (1)
  - Sinus bradycardia [Not Recovered/Not Resolved]

NARRATIVE: CASE EVENT DATE: 20180904
